FAERS Safety Report 7344729-4 (Version None)
Quarter: 2011Q1

REPORT INFORMATION
  Report Type: 
  Country: None (occurrence: None)
  Receive Date: 20110310
  Receipt Date: 20110307
  Transmission Date: 20110831
  Serious: Yes (Death, Life-Threatening, Hospitalization, Other)
  Sender: FDA-Public Use
  Company Number: PHHY2009JP15891

PATIENT
  Sex: Female
  Weight: 40 kg

DRUGS (11)
  1. GLAKAY [Concomitant]
     Dosage: 45 MG, UNK
     Route: 048
     Dates: start: 20060601, end: 20091028
  2. EXJADE [Suspect]
     Dosage: 500 MG, DAILY
     Route: 048
     Dates: start: 20090925, end: 20091022
  3. NEORAL [Suspect]
     Indication: APLASTIC ANAEMIA
     Dosage: 100 MG, DAILY
     Route: 048
     Dates: start: 20071122, end: 20090930
  4. DESFERAL [Concomitant]
     Dosage: 500 MG
     Route: 030
  5. NEUTROGIN [Concomitant]
     Indication: APLASTIC ANAEMIA
     Dosage: 2.50 UG
     Dates: start: 20060810, end: 20091122
  6. CLARITHROMYCIN [Concomitant]
     Dosage: 400 MG
     Route: 048
     Dates: start: 20080811, end: 20080921
  7. EXJADE [Suspect]
     Indication: APLASTIC ANAEMIA
     Dosage: 500 MG DAILY
     Route: 048
     Dates: start: 20080909, end: 20090924
  8. NEORAL [Suspect]
     Dosage: 75 MG, DAILY
     Route: 048
     Dates: start: 20091001, end: 20091014
  9. GLAKAY [Concomitant]
     Indication: APLASTIC ANAEMIA
     Dosage: 45 MG, UNK
     Route: 048
     Dates: start: 20060610, end: 20091028
  10. DIFLUCAN [Concomitant]
     Dosage: 200 MG, UNK
     Route: 048
     Dates: start: 20080811, end: 20081015
  11. ISONIAZID [Concomitant]
     Dosage: 100 MG, UNK
     Route: 048
     Dates: start: 20091113, end: 20091116

REACTIONS (11)
  - BRONCHITIS [None]
  - BACTERIAL INFECTION [None]
  - INFECTION [None]
  - DEHYDRATION [None]
  - PYREXIA [None]
  - MULTI-ORGAN FAILURE [None]
  - COUGH [None]
  - BLOOD CREATININE INCREASED [None]
  - RENAL FAILURE [None]
  - PNEUMONIA [None]
  - BLOOD UREA INCREASED [None]
